FAERS Safety Report 14627087 (Version 1)
Quarter: 2018Q1

REPORT INFORMATION
  Report Type: Spontaneous
  Country: US (occurrence: US)
  Receive Date: 20180312
  Receipt Date: 20180312
  Transmission Date: 20180509
  Serious: Yes (Life-Threatening, Hospitalization)
  Sender: FDA-Public Use
  Company Number: US-BAYER-2018-046486

PATIENT
  Age: 73 Year
  Sex: Female

DRUGS (4)
  1. MACROGOL 3350 [Suspect]
     Active Substance: POLYETHYLENE GLYCOL 3350
     Indication: BOWEL PREPARATION
     Dosage: 4 LITERS OF PEG SOLUTION L, ONCE
  2. MACROGOL 3350 [Suspect]
     Active Substance: POLYETHYLENE GLYCOL 3350
     Indication: COLONOSCOPY
  3. CHLORTHALIDONE. [Suspect]
     Active Substance: CHLORTHALIDONE
  4. LISINOPRIL. [Suspect]
     Active Substance: LISINOPRIL

REACTIONS (8)
  - Seizure [None]
  - Inappropriate antidiuretic hormone secretion [None]
  - Hyponatraemia [None]
  - Confusional state [None]
  - Product use in unapproved indication [None]
  - Vomiting [None]
  - Off label use [None]
  - Diarrhoea [None]
